FAERS Safety Report 15256054 (Version 1)
Quarter: 2018Q3

REPORT INFORMATION
  Report Type: Spontaneous
  Country: US (occurrence: US)
  Receive Date: 20180718
  Receipt Date: 20180718
  Transmission Date: 20181010
  Serious: Yes (Hospitalization)
  Sender: FDA-Public Use
  Company Number: None

PATIENT
  Age: 59 Year
  Sex: Male

DRUGS (1)
  1. TASIGNA [Suspect]
     Active Substance: NILOTINIB
     Route: 048

REACTIONS (5)
  - Epistaxis [None]
  - Drug dispensing error [None]
  - Incorrect dose administered [None]
  - Pleural effusion [None]
  - Confusional state [None]

NARRATIVE: CASE EVENT DATE: 20180718
